FAERS Safety Report 20738778 (Version 2)
Quarter: 2022Q2

REPORT INFORMATION
  Report Type: Report from Study
  Country: US (occurrence: None)
  Receive Date: 20220422
  Receipt Date: 20220513
  Transmission Date: 20220721
  Serious: Yes (Other)
  Sender: FDA-Public Use
  Company Number: 2022A155325

PATIENT
  Sex: Female

DRUGS (16)
  1. FASENRA [Suspect]
     Active Substance: BENRALIZUMAB
     Indication: Asthma
     Route: 058
     Dates: start: 20211115
  2. QUETIAPINE FUMARATE [Suspect]
     Active Substance: QUETIAPINE FUMARATE
     Dosage: 50.0MG UNKNOWN
     Route: 048
  3. FUROSEMIDE [Concomitant]
     Active Substance: FUROSEMIDE
  4. ALBUTEROL SU AER [Concomitant]
  5. BREO ELLIPTA AEP [Concomitant]
     Dosage: 100-25 MC
  6. CLONLDLNE PTW [Concomitant]
  7. HUMULIN  R U SOP [Concomitant]
     Dosage: 500 UNIT
  8. JANUVLA [Concomitant]
  9. LISINOPRLL [Concomitant]
  10. MONTEIUKAST [Concomitant]
  11. PREGABALIN [Concomitant]
     Active Substance: PREGABALIN
  12. FLUTICASONE SUS [Concomitant]
  13. SLMVASTATLN [Concomitant]
  14. SLNGULALR PAC [Concomitant]
  15. STOOL SOFTEN [Concomitant]
  16. PIOGLITAZONE [Concomitant]
     Active Substance: PIOGLITAZONE

REACTIONS (9)
  - Angina pectoris [Not Recovered/Not Resolved]
  - Asthma [Not Recovered/Not Resolved]
  - Chest discomfort [Not Recovered/Not Resolved]
  - Palpitations [Not Recovered/Not Resolved]
  - Hyperhidrosis [Not Recovered/Not Resolved]
  - Decreased appetite [Not Recovered/Not Resolved]
  - Pain in extremity [Not Recovered/Not Resolved]
  - Depression [Not Recovered/Not Resolved]
  - Peripheral swelling [Not Recovered/Not Resolved]
